FAERS Safety Report 21419705 (Version 1)
Quarter: 2022Q4

REPORT INFORMATION
  Report Type: Other
  Country: US (occurrence: None)
  Receive Date: 20221006
  Receipt Date: 20221006
  Transmission Date: 20230112
  Serious: Yes (Other)
  Sender: FDA-Public Use
  Company Number: US-ROCHE-3189463

PATIENT
  Sex: Female

DRUGS (1)
  1. ENSPRYNG [Suspect]
     Active Substance: SATRALIZUMAB-MWGE
     Indication: Demyelination
     Dosage: INJECT 120MG SUBCUTANEOUSLY EVERY 4 WEEK(S)
     Route: 058

REACTIONS (3)
  - Colitis [Unknown]
  - Irritable bowel syndrome [Unknown]
  - Peripheral paralysis [Unknown]
